FAERS Safety Report 9220471 (Version 1)
Quarter: 2013Q1

REPORT INFORMATION
  Report Type: Spontaneous
  Country: US (occurrence: None)
  Receive Date: 20120831
  Receipt Date: 20120831
  Transmission Date: 20140127
  Serious: No
  Sender: FDA-Public Use
  Company Number: 1000031318

PATIENT
  Age: 67 Year
  Sex: Female

DRUGS (8)
  1. DALIRESP [Suspect]
     Indication: CHRONIC OBSTRUCTIVE PULMONARY DISEASE
     Dosage: 500 MCG (500 MCG, 1 IN 1 D), ORAL
     Route: 048
     Dates: start: 20120430
  2. SPIRIVA (TIOTROPIUM BROMIDE) (TIOTROPIUM BROMIDE) [Concomitant]
  3. ADVAIR (FLUTICASONE) (FLUTICASONE) [Concomitant]
  4. MULTIVITAMINS (MULTIVITAMINS) (MULTIVITAMINS) [Concomitant]
  5. CALCIUM (CALCIUM) (CALCIUM) [Concomitant]
  6. BENAZEPRIL (BENAZEPRIL) (BENAZEPRIL) [Concomitant]
  7. ATIVAN (LOREZEPAM) (LOREZEPAM) [Concomitant]
  8. ALLERGY MEDICATION (NOS) (ALLERGY MEDICATION (NOS)) (ALLERGY MEDICATION (NOS)) [Concomitant]

REACTIONS (4)
  - Nausea [None]
  - Frequent bowel movements [None]
  - Depressed mood [None]
  - Crying [None]
